FAERS Safety Report 7500544-X (Version None)
Quarter: 2011Q2

REPORT INFORMATION
  Report Type: 
  Country: None (occurrence: None)
  Receive Date: 20110517
  Receipt Date: 20110426
  Transmission Date: 20111010
  Serious: Yes (Congenital Anomaly)
  Sender: FDA-Public Use
  Company Number: FK201100881

PATIENT

DRUGS (4)
  1. PACLITAXEL [Suspect]
     Dosage: TRANSPLACENTAL
     Route: 064
  2. DOXORUBICIN HYDROCHLORIDE (DOXORUBICIN HYDROCHLORIDE) (DOXORUBICIN HYD [Suspect]
     Dosage: TRANSPLACENTAL
     Route: 064
  3. DOCETAXEL [Suspect]
     Dosage: TRANSPLACENTAL
     Route: 064
  4. CYCLOPHOSPHAMIDE [Suspect]
     Dosage: 500 MG/M2, TRANSPLACENTAL
     Route: 064

REACTIONS (3)
  - PYLORIC STENOSIS [None]
  - CONGENITAL ANOMALY [None]
  - MATERNAL DRUGS AFFECTING FOETUS [None]
